FAERS Safety Report 17669847 (Version 2)
Quarter: 2020Q2

REPORT INFORMATION
  Report Type: Spontaneous
  Country: DK (occurrence: DK)
  Receive Date: 20200415
  Receipt Date: 20200501
  Transmission Date: 20200713
  Serious: Yes (Other)
  Sender: FDA-Public Use
  Company Number: DK-PFIZER INC-2020150616

PATIENT
  Age: 69 Year
  Sex: Female
  Weight: 49 kg

DRUGS (8)
  1. TRADOLAN [Concomitant]
     Active Substance: TRAMADOL
     Dosage: UNK
  2. CISPLATIN. [Suspect]
     Active Substance: CISPLATIN
     Dosage: UNK
  3. SURLID [Concomitant]
     Active Substance: ROXITHROMYCIN
     Dosage: UNK
  4. OXABENZ [Concomitant]
     Active Substance: OXAZEPAM
     Dosage: UNK
  5. SIMVASTATIN. [Concomitant]
     Active Substance: SIMVASTATIN
     Dosage: UNK
  6. PARACETAMOL [Concomitant]
     Active Substance: ACETAMINOPHEN
     Dosage: UNK
  7. GEMCITABINE HYDROCHLORIDE. [Suspect]
     Active Substance: GEMCITABINE HYDROCHLORIDE
     Dosage: UNK
  8. ALENDRONIC ACID [Concomitant]
     Active Substance: ALENDRONIC ACID
     Dosage: UNK

REACTIONS (3)
  - Blood bilirubin increased [Unknown]
  - C-reactive protein increased [Unknown]
  - Bile duct obstruction [Unknown]

NARRATIVE: CASE EVENT DATE: 20200310
